FAERS Safety Report 6099401-8 (Version None)
Quarter: 2009Q1

REPORT INFORMATION
  Report Type: 
  Country: None (occurrence: None)
  Receive Date: 20090226
  Receipt Date: 20090211
  Transmission Date: 20090719
  Serious: Yes (Other)
  Sender: FDA-Public Use
  Company Number: 2009S1001685

PATIENT
  Age: 55 Year
  Sex: Female

DRUGS (10)
  1. TRIAMTERENE AND HYDROCHLOROTHIAZIDE [Suspect]
     Indication: OEDEMA PERIPHERAL
     Dosage: SEE IMAGE
     Route: 047
     Dates: start: 20090101, end: 20090101
  2. TRIAMTERENE AND HYDROCHLOROTHIAZIDE [Suspect]
     Indication: OEDEMA PERIPHERAL
     Dosage: SEE IMAGE
     Route: 047
     Dates: start: 20090116, end: 20090101
  3. TRIAMTERENE AND HYDROCHLOROTHIAZIDE [Suspect]
     Indication: OEDEMA PERIPHERAL
     Dosage: SEE IMAGE
     Route: 047
     Dates: start: 20090116, end: 20090101
  4. TRIAMTERENE AND HYDROCHLOROTHIAZIDE [Suspect]
     Indication: OEDEMA PERIPHERAL
     Dosage: DAILY; ORAL
     Route: 048
     Dates: start: 20090101
  5. TRIAMTERENE AND HYDROCHLOROTHIAZIDE [Suspect]
     Indication: OEDEMA PERIPHERAL
     Dosage: DAILY; ORAL
     Route: 048
     Dates: start: 20090101
  6. HYDROCHLOROTHIAZIDE [Suspect]
     Indication: OEDEMA PERIPHERAL
     Dosage: 25 MG; ORAL
     Route: 048
     Dates: start: 20090112, end: 20090101
  7. IBUPROFEN [Concomitant]
  8. ENALAPRIL MALEATE [Concomitant]
  9. TRAMADOL [Concomitant]
  10. BACLOFEN [Concomitant]

REACTIONS (6)
  - ASTHENIA [None]
  - BACK PAIN [None]
  - DIZZINESS [None]
  - FEELING ABNORMAL [None]
  - MUSCULAR WEAKNESS [None]
  - MYOCARDIAL INFARCTION [None]
